FAERS Safety Report 9847888 (Version 2)
Quarter: 2014Q1

REPORT INFORMATION
  Report Type: Spontaneous
  Country: US (occurrence: US)
  Receive Date: 20140128
  Receipt Date: 20140218
  Transmission Date: 20141002
  Serious: No
  Sender: FDA-Public Use
  Company Number: US-B.I. PHARMACEUTICALS,INC./RIDGEFIELD-2014-BI-02015BP

PATIENT
  Age: 72 Year
  Sex: Female
  Weight: 79 kg

DRUGS (1)
  1. AGGRENOX [Suspect]
     Indication: PROPHYLAXIS
     Dosage: STRENGTH: 25 MG / 200 MG; DAILY DOSE: 50MG/400 MG
     Route: 048
     Dates: start: 20140106

REACTIONS (1)
  - Muscle spasms [Not Recovered/Not Resolved]
